FAERS Safety Report 4663979-9 (Version None)
Quarter: 2005Q2

REPORT INFORMATION
  Report Type: 
  Country: None (occurrence: None)
  Receive Date: 20050502
  Receipt Date: 20050329
  Transmission Date: 20051028
  Serious: Yes (Other)
  Sender: FDA-Public Use
  Company Number: 200512527US

PATIENT
  Age: 53 Year
  Sex: Male

DRUGS (10)
  1. KETEK [Suspect]
     Indication: SINUSITIS
     Dates: start: 20040904, end: 20040908
  2. PSEUDOEPHEDRINE HYDROCHLORIDE, GUAIFENESIN (SUDAL) [Concomitant]
  3. NEXIUM [Concomitant]
  4. NEURONTIN [Concomitant]
  5. MELOXICAM (MOBIC) [Concomitant]
  6. LIPITOR [Concomitant]
  7. MONTELUKAST SODIUM [Concomitant]
  8. METOPROLOL SUCCINATE [Concomitant]
  9. DESLORATADINE [Concomitant]
  10. AMLODIPINE, BENAZEPRIL HYDROCHLORIDE (LOTREL) [Concomitant]

REACTIONS (2)
  - DIPLOPIA [None]
  - VISION BLURRED [None]
